FAERS Safety Report 6347780-6 (Version None)
Quarter: 2009Q3

REPORT INFORMATION
  Report Type: 
  Country: None (occurrence: None)
  Receive Date: 20090910
  Receipt Date: 20090905
  Transmission Date: 20100115
  Serious: Yes (Hospitalization)
  Sender: FDA-Public Use
  Company Number: A0806425A

PATIENT
  Age: 8 Year
  Sex: Male

DRUGS (1)
  1. AMOXIL [Suspect]
     Indication: DRUG USE FOR UNKNOWN INDICATION
     Dosage: 2.5ML THREE TIMES PER DAY

REACTIONS (3)
  - INCORRECT DOSE ADMINISTERED [None]
  - POISONING [None]
  - PRODUCT QUALITY ISSUE [None]
